FAERS Safety Report 5468725-7 (Version None)
Quarter: 2007Q3

REPORT INFORMATION
  Report Type: 
  Country: None (occurrence: None)
  Receive Date: 20070820
  Receipt Date: 20070620
  Transmission Date: 20080115
  Serious: No
  Sender: FDA-Public Use
  Company Number: WAES 0706USA03852

PATIENT
  Age: 76 Year
  Sex: Female

DRUGS (8)
  1. JANUVIA [Suspect]
     Indication: BLOOD GLUCOSE
     Dosage: 100 MG, DAILY; PO
     Route: 048
     Dates: start: 20070301
  2. ACTONEL [Concomitant]
  3. BENICAR [Concomitant]
  4. CARDURA [Concomitant]
  5. ECOTRIN [Concomitant]
  6. LIPITOR [Concomitant]
  7. PREVACID [Concomitant]
  8. ZETIA [Concomitant]

REACTIONS (1)
  - CONSTIPATION [None]
